FAERS Safety Report 8835481 (Version 1)
Quarter: 2012Q4

REPORT INFORMATION
  Report Type: 
  Country: US (occurrence: US)
  Receive Date: 20121011
  Receipt Date: 20121011
  Transmission Date: 20130627
  Serious: Yes (Other)
  Sender: FDA-Public Use
  Company Number: PHEH2012US019457

PATIENT
  Sex: Male
  Weight: 84.81 kg

DRUGS (17)
  1. DIOVAN [Suspect]
     Indication: HYPERTENSION
     Dosage: 160 mg, BID
     Route: 048
  2. LISINOPRIL [Suspect]
     Indication: BLOOD PRESSURE
     Dosage: 10 mg, QD
     Route: 048
     Dates: start: 20120823
  3. PREDNISONE [Concomitant]
     Dosage: 5 mg, QD
     Route: 048
  4. LEFLUNOMIDE [Concomitant]
     Dosage: 20 mg, QD
     Route: 048
  5. METOPROLOL [Concomitant]
     Dosage: 25 mg, QD
     Route: 048
  6. METHOTREXATE [Concomitant]
     Dosage: 2.5 mg, UNK
  7. FOLIC ACID [Concomitant]
     Dosage: 1 mg, TID
  8. ALENDRONATE SODIUM [Concomitant]
     Dosage: 70 mg, QW
  9. PRAVASTATIN [Concomitant]
     Dosage: 80 mg, QD
  10. HYDROCODONE W/APAP [Concomitant]
     Dosage: 5.325 mg, QD
  11. BROVANA [Concomitant]
     Dosage: UNK UKN, BID
  12. BUDESONIDE [Concomitant]
     Dosage: UNK UKN, BID
  13. BABY ASPIRIN [Concomitant]
     Dosage: 1 DF, Per day
  14. VITAMIN D [Concomitant]
     Dosage: 5000 mg, Per day
  15. OSCAL [Concomitant]
     Dosage: 2 DF, BID
  16. CENTRUM SILVER [Concomitant]
     Dosage: 1 DF, Per day
  17. ISOSORBIDE [Concomitant]
     Dosage: 30 mg, Per day

REACTIONS (6)
  - Osteoporosis [Unknown]
  - Rheumatoid arthritis [Unknown]
  - Irritable bowel syndrome [Unknown]
  - Chronic obstructive pulmonary disease [Unknown]
  - Dementia Alzheimer^s type [Unknown]
  - Blood pressure inadequately controlled [Unknown]
